FAERS Safety Report 6607490 (Version 1)
Quarter: 2020Q3

REPORT INFORMATION
  Report Type: Report from Study
  Country: DE (occurrence: DE)
  Receive Date: 20080407
  Receipt Date: 20080407
  Transmission Date: 20201104
  Serious: Yes (Other)
  Sender: FDA-Public Use
  Company Number: DE-ROCHE-555739

PATIENT
  Age: 84 Year
  Sex: Female
  Weight: 63 kg

DRUGS (3)
  1. IBANDRONIC ACID. [Suspect]
     Active Substance: IBANDRONIC ACID
     Indication: OSTEOPOROSIS
     Route: 048
     Dates: start: 20061211, end: 20071215
  2. PARACETAMOL [Concomitant]
     Active Substance: ACETAMINOPHEN
     Indication: PAIN MANAGEMENT
     Dosage: DRUG NAME PARACETAMOL COMP DOSAGE REGIMEN REPORTED AS 0?3
  3. TILIDINE [Concomitant]
     Active Substance: TILIDINE
     Indication: PAIN MANAGEMENT
     Dosage: DRUG NAME TILIDIN TROPFEN

REACTIONS (2)
  - Oesophageal stenosis [Recovered/Resolved]
  - Gastritis [Recovered/Resolved]
